FAERS Safety Report 4304086-4 (Version None)
Quarter: 2004Q1

REPORT INFORMATION
  Report Type: 
  Country: None (occurrence: None)
  Receive Date: 20040223
  Receipt Date: 20031217
  Transmission Date: 20041129
  Serious: No
  Sender: FDA-Public Use
  Company Number: PHEH2003US11557

PATIENT
  Sex: 0

DRUGS (1)
  1. ZELNORM [Suspect]
     Dosage: UNK
     Route: 065

REACTIONS (1)
  - WEIGHT INCREASED [None]
